FAERS Safety Report 8239914-3 (Version None)
Quarter: 2012Q1

REPORT INFORMATION
  Report Type: 
  Country: None (occurrence: None)
  Receive Date: 20120328
  Receipt Date: 20120326
  Transmission Date: 20120608
  Serious: No
  Sender: FDA-Public Use
  Company Number: US-TEVA-326434USA

PATIENT
  Sex: Female
  Weight: 65.83 kg

DRUGS (1)
  1. COPAXONE [Suspect]
     Indication: MULTIPLE SCLEROSIS
     Dosage: .9524 MILLIGRAM;
     Route: 058
     Dates: start: 20070101

REACTIONS (6)
  - RASH [None]
  - INJECTION SITE PRURITUS [None]
  - INAPPROPRIATE SCHEDULE OF DRUG ADMINISTRATION [None]
  - PHOTOSENSITIVITY REACTION [None]
  - PALPITATIONS [None]
  - INJECTION SITE RASH [None]
